FAERS Safety Report 9805507 (Version 1)
Quarter: 2014Q1

REPORT INFORMATION
  Report Type: Spontaneous
  Country: US (occurrence: US)
  Receive Date: 20140109
  Receipt Date: 20140109
  Transmission Date: 20141002
  Serious: Yes (Hospitalization, Other)
  Sender: FDA-Public Use
  Company Number: US-ASTELLAS-2014US000132

PATIENT
  Sex: Female

DRUGS (17)
  1. TARCEVA [Suspect]
     Indication: METASTASES TO LUNG
     Dosage: 150 MG, UID/QD
     Route: 048
     Dates: start: 20121113
  2. TARCEVA [Suspect]
     Indication: BRONCHIAL CARCINOMA
     Dosage: 150 MG, UID/QD
     Route: 048
     Dates: start: 20130925, end: 20131028
  3. TARCEVA [Suspect]
     Indication: HEPATIC CANCER
  4. ATENOLOL [Concomitant]
     Indication: PRODUCT USED FOR UNKNOWN INDICATION
     Dosage: UNK
     Route: 065
  5. CYMBALTA [Concomitant]
     Indication: PRODUCT USED FOR UNKNOWN INDICATION
     Dosage: UNK
     Route: 065
  6. RAMIPRIL [Concomitant]
     Indication: PRODUCT USED FOR UNKNOWN INDICATION
     Dosage: UNK
     Route: 065
  7. SENNA                              /00142201/ [Concomitant]
     Indication: PRODUCT USED FOR UNKNOWN INDICATION
     Dosage: UNK
     Route: 065
  8. AMBIEN [Concomitant]
     Indication: PRODUCT USED FOR UNKNOWN INDICATION
     Dosage: UNK
     Route: 065
  9. DEMEROL [Concomitant]
     Indication: PRODUCT USED FOR UNKNOWN INDICATION
     Dosage: UNK
     Route: 065
  10. EPI E-Z PEN JR. [Concomitant]
     Indication: PRODUCT USED FOR UNKNOWN INDICATION
     Dosage: UNK
     Route: 065
  11. HYDROXYZINE [Concomitant]
     Indication: PRODUCT USED FOR UNKNOWN INDICATION
     Dosage: UNK
     Route: 065
  12. ZOFRAN                             /00955302/ [Concomitant]
     Indication: PRODUCT USED FOR UNKNOWN INDICATION
     Dosage: UNK
     Route: 065
  13. PHENERGAN                          /00033001/ [Concomitant]
     Indication: PRODUCT USED FOR UNKNOWN INDICATION
     Dosage: UNK
     Route: 065
  14. PROMETHAZINE [Concomitant]
     Indication: PRODUCT USED FOR UNKNOWN INDICATION
     Dosage: UNK
     Route: 065
  15. TRIAMCINOLONE [Concomitant]
     Indication: PRODUCT USED FOR UNKNOWN INDICATION
     Dosage: UNK
     Route: 065
  16. DIPHENOXYLATE [Concomitant]
     Indication: PRODUCT USED FOR UNKNOWN INDICATION
     Dosage: UNK
     Route: 065
  17. LOMOTIL [Concomitant]
     Indication: PRODUCT USED FOR UNKNOWN INDICATION
     Dosage: UNK
     Route: 065

REACTIONS (18)
  - Fall [Unknown]
  - Mass [Unknown]
  - Hallucination [Unknown]
  - Skin haemorrhage [Unknown]
  - Vaginal mucosal blistering [Unknown]
  - Furuncle [Unknown]
  - Furuncle [Unknown]
  - Skin exfoliation [Unknown]
  - Skin burning sensation [Unknown]
  - Blister infected [Unknown]
  - Blister [Unknown]
  - Blister [Unknown]
  - Blister [Unknown]
  - Skin fissures [Unknown]
  - Skin induration [Unknown]
  - Acne [Unknown]
  - Nausea [Unknown]
  - Diarrhoea [Unknown]
